FAERS Safety Report 17109068 (Version 1)
Quarter: 2019Q4

REPORT INFORMATION
  Report Type: Spontaneous
  Country: CN (occurrence: CN)
  Receive Date: 20191204
  Receipt Date: 20191204
  Transmission Date: 20200122
  Serious: Yes (Hospitalization)
  Sender: FDA-Public Use
  Company Number: CN-BAXTER-2019BAX024359

PATIENT
  Age: 64 Year
  Sex: Female
  Weight: 60 kg

DRUGS (4)
  1. HOLOXAN [Suspect]
     Active Substance: IFOSFAMIDE
     Indication: UTERINE CANCER
     Dosage: DAY 1-4; IFOSFAMIDE + 0.9 % SODIUM CHLORIDE (NS) 500 ML
     Route: 041
     Dates: start: 20191105, end: 20191108
  2. NUO XING [Suspect]
     Active Substance: CISPLATIN
     Indication: UTERINE CANCER
     Dosage: DAY 1-4; CISPLATIN + 0.9 % SODIUM CHLORIDE (NS) 250 ML
     Route: 041
     Dates: start: 20191105, end: 20191108
  3. 0.9% SODIUM CHLORIDE INJECTION [Suspect]
     Active Substance: SODIUM CHLORIDE
     Indication: MEDICATION DILUTION
     Dosage: DAY 1-4; IFOSFAMIDE (2.4 G) + 0.9 % SODIUM CHLORIDE (NS)
     Route: 041
     Dates: start: 20191105, end: 20191108
  4. 0.9% SODIUM CHLORIDE INJECTION [Suspect]
     Active Substance: SODIUM CHLORIDE
     Dosage: DAY 1-4; CISPLATIN 30 MG + 0.9 % SODIUM CHLORIDE (NS)
     Route: 041
     Dates: start: 20191105, end: 20191108

REACTIONS (6)
  - Asthenia [Recovering/Resolving]
  - Abdominal pain [Recovering/Resolving]
  - Nausea [Recovering/Resolving]
  - Decreased appetite [Recovering/Resolving]
  - Vomiting [Recovering/Resolving]
  - Fatigue [Recovering/Resolving]

NARRATIVE: CASE EVENT DATE: 20191111
